FAERS Safety Report 7091108-3 (Version None)
Quarter: 2010Q4

REPORT INFORMATION
  Report Type: 
  Country: None (occurrence: None)
  Receive Date: 20101109
  Receipt Date: 20101029
  Transmission Date: 20110411
  Serious: Yes (Hospitalization)
  Sender: FDA-Public Use
  Company Number: JP-BAXTER-2010BH024075

PATIENT
  Age: 7 Year
  Sex: Male

DRUGS (15)
  1. CYCLOPHOSPHAMIDE [Suspect]
     Indication: PINEAL GLAND CYST
     Route: 041
     Dates: start: 20100616, end: 20100616
  2. CYCLOPHOSPHAMIDE [Suspect]
     Route: 041
     Dates: start: 20100512, end: 20100516
  3. CYCLOPHOSPHAMIDE [Suspect]
     Route: 041
     Dates: start: 20100412, end: 20100416
  4. CYCLOPHOSPHAMIDE [Suspect]
     Route: 041
     Dates: start: 20100309, end: 20100313
  5. METHOTREXATE GENERIC [Suspect]
     Indication: PINEAL GLAND CYST
     Route: 037
     Dates: start: 20100616, end: 20100616
  6. METHOTREXATE GENERIC [Suspect]
     Route: 037
     Dates: start: 20100512, end: 20100512
  7. METHOTREXATE GENERIC [Suspect]
     Route: 037
     Dates: start: 20100412, end: 20100412
  8. METHOTREXATE GENERIC [Suspect]
     Route: 037
     Dates: start: 20100309, end: 20100309
  9. RANDA [Suspect]
     Indication: PINEAL GLAND CYST
     Route: 041
     Dates: start: 20100516, end: 20100516
  10. RANDA [Suspect]
     Route: 041
     Dates: start: 20100416, end: 20100416
  11. RANDA [Suspect]
     Route: 041
     Dates: start: 20100313, end: 20100313
  12. ETOPOSIDE [Suspect]
     Indication: PINEAL GLAND CYST
     Route: 041
     Dates: start: 20100616, end: 20100617
  13. ETOPOSIDE [Suspect]
     Route: 041
     Dates: start: 20100512, end: 20100516
  14. ETOPOSIDE [Suspect]
     Route: 041
     Dates: start: 20100412, end: 20100416
  15. ETOPOSIDE [Suspect]
     Route: 041
     Dates: start: 20100309, end: 20100313

REACTIONS (1)
  - PANCREATITIS ACUTE [None]
